FAERS Safety Report 5081288-3 (Version None)
Quarter: 2006Q3

REPORT INFORMATION
  Report Type: 
  Country: None (occurrence: None)
  Receive Date: 20060816
  Receipt Date: 20060807
  Transmission Date: 20061208
  Serious: Yes (Hospitalization)
  Sender: FDA-Public Use
  Company Number: GBWYE564407AUG06

PATIENT
  Sex: Female
  Weight: 98 kg

DRUGS (8)
  1. ENBREL [Suspect]
     Indication: RHEUMATOID ARTHRITIS
     Route: 058
     Dates: start: 20030910
  2. FUROSEMIDE [Concomitant]
     Dosage: UNKNOWN
     Route: 065
  3. RISEDRONATE [Concomitant]
     Dosage: UNKNOWN
     Route: 065
  4. LANSOPRAZOLE [Concomitant]
     Dosage: UNKNOWN
     Route: 065
  5. MORPHINE SULFATE [Concomitant]
     Dosage: UNKNOWN
     Route: 065
  6. DIHYDROCODEINE/PARACETAMOL [Concomitant]
     Dosage: UNKNOWN
     Route: 065
  7. PREDNISOLONE [Concomitant]
     Dosage: UNKNOWN
     Route: 065
  8. UNSPECIFIED HORMONE REPLACEMENT THERAPY AGENT [Concomitant]
     Dosage: UNKNOWN
     Route: 065

REACTIONS (3)
  - CORNEAL ABSCESS [None]
  - POSTOPERATIVE INFECTION [None]
  - SURGERY [None]
